FAERS Safety Report 16773210 (Version 1)
Quarter: 2019Q3

REPORT INFORMATION
  Report Type: Spontaneous
  Country: CN (occurrence: CN)
  Receive Date: 20190904
  Receipt Date: 20190904
  Transmission Date: 20191005
  Serious: Yes (Hospitalization)
  Sender: FDA-Public Use
  Company Number: PHHY2019CN204194

PATIENT
  Age: 77 Year
  Sex: Male

DRUGS (1)
  1. RESERPINE. [Suspect]
     Active Substance: RESERPINE
     Indication: BLOOD PRESSURE INCREASED
     Dosage: 1 DF (TABLET), TID
     Route: 048

REACTIONS (2)
  - Faeces discoloured [Unknown]
  - Therapeutic response decreased [Unknown]
